FAERS Safety Report 4767176-8 (Version None)
Quarter: 2005Q3

REPORT INFORMATION
  Report Type: 
  Country: None (occurrence: None)
  Receive Date: 20050909
  Receipt Date: 20050909
  Transmission Date: 20060218
  Serious: Yes (Hospitalization)
  Sender: FDA-Public Use
  Company Number: None

PATIENT
  Sex: Male
  Weight: 86.1834 kg

DRUGS (3)
  1. REMICADE [Suspect]
     Indication: PSORIATIC ARTHROPATHY
     Dosage: 5MG/KG Q8 WKS IV BOLUS
     Route: 040
  2. METHOTREXATE [Suspect]
     Indication: PSORIATIC ARTHROPATHY
     Dosage: 25MG Q WK PO
     Route: 048
  3. CHOP THERAPY [Concomitant]

REACTIONS (3)
  - ABDOMINAL MASS [None]
  - ABDOMINAL PAIN [None]
  - NON-HODGKIN'S LYMPHOMA [None]
